FAERS Safety Report 8871617 (Version 2)
Quarter: 2014Q1

REPORT INFORMATION
  Report Type: Spontaneous
  Country: FR (occurrence: FR)
  Receive Date: 20121026
  Receipt Date: 20140202
  Transmission Date: 20141002
  Serious: Yes (Other)
  Sender: FDA-Public Use
  Company Number: FR-US-EMD SERONO, INC.-7167814

PATIENT
  Age: 46 Year
  Sex: Female

DRUGS (8)
  1. REBIF [Suspect]
     Indication: MULTIPLE SCLEROSIS
     Route: 058
     Dates: start: 20120720, end: 20121019
  2. REBIF [Suspect]
     Route: 058
     Dates: start: 20121130
  3. AMOXICILLIN [Suspect]
     Indication: VAGINAL INFECTION
     Route: 048
     Dates: start: 20120910, end: 20120917
  4. AMOXICILLIN [Suspect]
     Route: 048
     Dates: start: 20121015
  5. HORMONAL TREATMENT NOS [Suspect]
     Indication: MENORRHAGIA
     Dates: start: 201208
  6. LEVOTHYROXINE [Concomitant]
     Indication: POST PROCEDURAL HYPOTHYROIDISM
     Route: 048
     Dates: start: 2007
  7. DAIVOBET                           /01643401/ [Concomitant]
     Indication: PSORIASIS
     Route: 003
     Dates: start: 2011
  8. DIPROSONE                          /00008504/ [Concomitant]
     Indication: PSORIASIS
     Route: 003
     Dates: start: 2011

REACTIONS (9)
  - Gingival abscess [Recovered/Resolved]
  - Folliculitis [Recovered/Resolved]
  - Lip swelling [Unknown]
  - Psoriasis [Recovered/Resolved]
  - Rash pruritic [Recovered/Resolved]
  - Pruritus [Unknown]
  - Injection site erythema [Unknown]
  - Injection site pain [Unknown]
  - Injection site inflammation [Recovered/Resolved]
